FAERS Safety Report 10077476 (Version 1)
Quarter: 2014Q2

REPORT INFORMATION
  Report Type: Spontaneous
  Country: US (occurrence: US)
  Receive Date: 20140414
  Receipt Date: 20140414
  Transmission Date: 20141212
  Serious: No
  Sender: FDA-Public Use
  Company Number: US-BANPHARM-20131582

PATIENT
  Age: 67 Year
  Sex: Female
  Weight: 63.49 kg

DRUGS (8)
  1. NAPROXEN SODIUM 220 MG [Suspect]
     Indication: PAIN
     Dosage: 220 MG, PRN,
     Route: 048
     Dates: start: 20130802, end: 20130806
  2. FUROSEMIDE [Concomitant]
  3. RAMIPRIL [Concomitant]
  4. DIOVAN [Concomitant]
  5. HYDROZOLINE [Concomitant]
  6. ABILIFY [Concomitant]
     Dates: start: 201304
  7. EFFEXOR [Concomitant]
  8. DEPAKOTE [Concomitant]

REACTIONS (2)
  - Dizziness [Not Recovered/Not Resolved]
  - Asthenia [Not Recovered/Not Resolved]
